FAERS Safety Report 9084600 (Version 2)
Quarter: 2013Q1

REPORT INFORMATION
  Report Type: Spontaneous
  Country: US (occurrence: US)
  Receive Date: 20130218
  Receipt Date: 20130225
  Transmission Date: 20140127
  Serious: Yes (Death, Other)
  Sender: FDA-Public Use
  Company Number: PHEH2013US003787

PATIENT
  Age: 61 Year
  Sex: Female

DRUGS (2)
  1. EXJADE [Suspect]
     Indication: LYMPHOPROLIFERATIVE DISORDER
     Dosage: UNK UKN, QD
     Route: 048
     Dates: start: 20121010
  2. EXJADE [Suspect]
     Dosage: 500 MG, DAILY

REACTIONS (3)
  - Death [Fatal]
  - Myelodysplastic syndrome transformation [Unknown]
  - Acute myeloid leukaemia [Unknown]
